FAERS Safety Report 21094542 (Version 3)
Quarter: 2023Q1

REPORT INFORMATION
  Report Type: Report from Study
  Country: US (occurrence: US)
  Receive Date: 20220718
  Receipt Date: 20230208
  Transmission Date: 20230418
  Serious: No
  Sender: FDA-Public Use
  Company Number: US-NOVARTISTESTPH-NVSC2022US161841

PATIENT
  Sex: Female

DRUGS (3)
  1. TREPROSTINIL [Suspect]
     Active Substance: TREPROSTINIL
     Indication: Pulmonary arterial hypertension
     Dosage: UNK, CONT (20 NG/KG/MIN)
     Route: 042
     Dates: start: 202206
  2. TREPROSTINIL [Suspect]
     Active Substance: TREPROSTINIL
     Dosage: UNK UNK, CONT (12 NG/KG/MIN)
     Route: 042
     Dates: start: 20220709
  3. TREPROSTINIL [Suspect]
     Active Substance: TREPROSTINIL
     Dosage: UNK UNK, CONT (14 NG/KG/MIN)
     Route: 042
     Dates: start: 20220709

REACTIONS (13)
  - Constipation [Not Recovered/Not Resolved]
  - Pain [Unknown]
  - Arthralgia [Unknown]
  - Illness [Unknown]
  - Mood altered [Unknown]
  - Migraine [Unknown]
  - Sluggishness [Unknown]
  - Nausea [Unknown]
  - Abdominal pain [Unknown]
  - Pain in extremity [Unknown]
  - Vomiting [Unknown]
  - Fatigue [Unknown]
  - Drug ineffective [Unknown]
